FAERS Safety Report 7980616-6 (Version None)
Quarter: 2011Q4

REPORT INFORMATION
  Report Type: 
  Country: None (occurrence: None)
  Receive Date: 20111214
  Receipt Date: 20111209
  Transmission Date: 20120403
  Serious: No
  Sender: FDA-Public Use
  Company Number: US-B.I. PHARMACEUTICALS,INC./RIDGEFIELD-2011-BP-26146BP

PATIENT
  Sex: Male

DRUGS (2)
  1. DULERA ORAL INHALATION [Suspect]
     Route: 055
     Dates: start: 20111112
  2. SPIRIVA [Suspect]
     Indication: CHRONIC OBSTRUCTIVE PULMONARY DISEASE
     Dosage: 18 MCG
     Route: 055
     Dates: start: 20111114

REACTIONS (2)
  - PRODUCTIVE COUGH [None]
  - DYSPNOEA [None]
